FAERS Safety Report 9798292 (Version 1)
Quarter: 2014Q1

REPORT INFORMATION
  Report Type: Spontaneous
  Country: IN (occurrence: IN)
  Receive Date: 20140106
  Receipt Date: 20140106
  Transmission Date: 20141002
  Serious: Yes (Other)
  Sender: FDA-Public Use
  Company Number: PHHY2013IN153427

PATIENT
  Age: 35 Year
  Sex: Male

DRUGS (1)
  1. DEXAMETHASONE [Suspect]
     Indication: RHINITIS
     Route: 045

REACTIONS (4)
  - Chorioretinopathy [Unknown]
  - Retinal detachment [Unknown]
  - Visual field defect [Unknown]
  - Incorrect route of drug administration [Unknown]
